FAERS Safety Report 7178249-7 (Version None)
Quarter: 2010Q4

REPORT INFORMATION
  Report Type: 
  Country: None (occurrence: None)
  Receive Date: 20101220
  Receipt Date: 20101213
  Transmission Date: 20110411
  Serious: Yes (Other)
  Sender: FDA-Public Use
  Company Number: US-US-EMD SERONO, INC.-230191J10USA

PATIENT
  Sex: Female
  Weight: 145 kg

DRUGS (9)
  1. REBIF [Suspect]
     Indication: MULTIPLE SCLEROSIS
     Route: 058
     Dates: start: 20091216, end: 20100106
  2. REBIF [Suspect]
     Route: 058
     Dates: start: 20100106, end: 20100101
  3. REBIF [Suspect]
     Route: 058
     Dates: start: 20100101, end: 20100301
  4. UNSPECIFIED INHALER [Concomitant]
     Indication: ASTHMA
  5. METOPROLOL TARTRATE [Concomitant]
     Indication: HYPERTENSION
  6. CLONIDINE [Concomitant]
     Indication: HYPERTENSION
  7. INSULIN [Concomitant]
     Indication: DIABETES MELLITUS
  8. SYNTHROID [Concomitant]
     Indication: THYROID DISORDER
  9. ASPIRIN [Concomitant]
     Dates: start: 20080101

REACTIONS (6)
  - ANAPHYLACTIC REACTION [None]
  - BACK PAIN [None]
  - CHILLS [None]
  - DIZZINESS [None]
  - LUNG DISORDER [None]
  - PAIN [None]
